FAERS Safety Report 9239854 (Version 1)
Quarter: 2013Q2

REPORT INFORMATION
  Report Type: Spontaneous
  Country: AU (occurrence: AU)
  Receive Date: 20130418
  Receipt Date: 20130418
  Transmission Date: 20140414
  Serious: Yes (Death)
  Sender: FDA-Public Use
  Company Number: AU-BAXTER-2013BAX014364

PATIENT
  Sex: Female

DRUGS (2)
  1. BAXTER WATER FOR INJECTIONS 1000ML INJECTION BP BAG AHB0304 [Suspect]
     Indication: PRODUCT USED FOR UNKNOWN INDICATION
     Route: 042
  2. VIDAZA [Suspect]
     Indication: PRODUCT USED FOR UNKNOWN INDICATION
     Route: 042

REACTIONS (3)
  - Lung infection [Fatal]
  - Bone marrow failure [Fatal]
  - Fungal infection [Fatal]
